FAERS Safety Report 9570517 (Version 1)
Quarter: 2013Q4

REPORT INFORMATION
  Report Type: Spontaneous
  Country: US (occurrence: US)
  Receive Date: 20131001
  Receipt Date: 20131001
  Transmission Date: 20140711
  Serious: No
  Sender: FDA-Public Use
  Company Number: US-009507513-1309USA010799

PATIENT
  Sex: Male

DRUGS (1)
  1. PEGINTRON [Suspect]
     Dosage: KIT
     Route: 058
     Dates: end: 2006

REACTIONS (10)
  - Hypothyroidism [Unknown]
  - Suicidal ideation [Unknown]
  - Arthralgia [Unknown]
  - Fatigue [Unknown]
  - Depression [Unknown]
  - Mood altered [Unknown]
  - Irritability [Unknown]
  - Weight decreased [Unknown]
  - Hepatitis C virus test positive [Recovered/Resolved]
  - Mental disorder [Unknown]
